FAERS Safety Report 18184355 (Version 2)
Quarter: 2020Q3

REPORT INFORMATION
  Report Type: Report from Study
  Country: None (occurrence: US)
  Receive Date: 20200824
  Receipt Date: 20200921
  Transmission Date: 20201103
  Serious: Yes (Other)
  Sender: FDA-Public Use
  Company Number: US-ABBVIE-20K-163-3530038-00

PATIENT
  Sex: Female

DRUGS (1)
  1. HUMIRA [Suspect]
     Active Substance: ADALIMUMAB
     Indication: PSORIASIS
     Route: 058

REACTIONS (5)
  - Sleep disorder [Unknown]
  - Benign neoplasm [Unknown]
  - Benign neoplasm [Recovered/Resolved]
  - Pain [Not Recovered/Not Resolved]
  - Facial neuralgia [Recovered/Resolved]
